FAERS Safety Report 6190145 (Version 10)
Quarter: 2013Q2

REPORT INFORMATION
  Report Type: Spontaneous
  Country: US (occurrence: US)
  Receive Date: 20061218
  Receipt Date: 20130520
  Transmission Date: 20140414
  Serious: Yes (Other)
  Sender: FDA-Public Use
  Company Number: PHEH2006US15196

PATIENT
  Age: 46 Year
  Sex: Male

DRUGS (16)
  1. ZOMETA [Suspect]
     Indication: METASTATIC NEOPLASM
     Dosage: 4 MG, QMO
     Dates: start: 2002, end: 200407
  2. CIMETIDINE [Concomitant]
     Dosage: 400 MG, BID
  3. MOTRIN [Concomitant]
     Dosage: 600 MG, PRN
  4. STOOL SOFTENER [Concomitant]
  5. COLCHICINE [Concomitant]
     Dosage: 0.6 MG, TID
  6. INDOCIN [Concomitant]
  7. ALLOPURINOL [Concomitant]
     Dosage: 300 MG, QD
  8. TYLENOL W/CODEINE NO. 3 [Concomitant]
  9. HYDROCODONE [Concomitant]
  10. MS CONTIN [Concomitant]
     Dosage: 40 MG, TID
  11. ZYLOPRIM [Concomitant]
     Dosage: 100 MG, BID
  12. PREDNISONE [Concomitant]
     Dosage: 10 MG, UNK
  13. RANITIDINE [Concomitant]
  14. COMPAZINE [Concomitant]
     Dosage: 10 MG, UNK
  15. CELEBREX [Concomitant]
  16. ORAMORPH [Concomitant]
     Dosage: 15 MG, QD

REACTIONS (39)
  - Rectal haemorrhage [Unknown]
  - Osteonecrosis of jaw [Unknown]
  - General physical health deterioration [Unknown]
  - Osteomyelitis [Recovered/Resolved]
  - Oral discomfort [Recovering/Resolving]
  - Gingivitis [Recovering/Resolving]
  - Pain in jaw [Unknown]
  - Oral mucosal erythema [Recovering/Resolving]
  - Gingival swelling [Recovering/Resolving]
  - Induration [Unknown]
  - Bone disorder [Unknown]
  - Swelling [Unknown]
  - Trismus [Unknown]
  - Mastication disorder [Unknown]
  - Pain [Unknown]
  - Anxiety [Unknown]
  - Decreased interest [Unknown]
  - Mouth ulceration [Unknown]
  - Metastases to bone [Unknown]
  - Arthritis [Unknown]
  - Gout [Unknown]
  - Liver function test abnormal [Unknown]
  - Headache [Unknown]
  - Hyperuricaemia [Unknown]
  - Oedema peripheral [Unknown]
  - Decreased appetite [Unknown]
  - Dizziness [Unknown]
  - Dry mouth [Unknown]
  - Pyrexia [Unknown]
  - Bone pain [Unknown]
  - Night sweats [Unknown]
  - Sinus disorder [Unknown]
  - Infection [Unknown]
  - Metastatic neoplasm [Unknown]
  - Bone lesion [Unknown]
  - Hepatic steatosis [Unknown]
  - Lymphadenopathy [Unknown]
  - Oedema [Unknown]
  - Spinal osteoarthritis [Unknown]
